FAERS Safety Report 15297454 (Version 2)
Quarter: 2018Q4

REPORT INFORMATION
  Report Type: Spontaneous
  Country: US (occurrence: US)
  Receive Date: 20180820
  Receipt Date: 20181204
  Transmission Date: 20190204
  Serious: Yes (Other)
  Sender: FDA-Public Use
  Company Number: US-PFIZER INC-2018333337

PATIENT
  Age: 49 Year
  Sex: Female
  Weight: 72.56 kg

DRUGS (1)
  1. XELJANZ [Suspect]
     Active Substance: TOFACITINIB CITRATE
     Indication: RHEUMATOID ARTHRITIS
     Dosage: 1 TABLET BY MOUTH TWICE A DAY
     Route: 048
     Dates: start: 201803

REACTIONS (8)
  - Sjogren^s syndrome [Unknown]
  - Dry eye [Unknown]
  - Aptyalism [Unknown]
  - Dry mouth [Unknown]
  - Condition aggravated [Unknown]
  - Dyspepsia [Unknown]
  - Fatigue [Unknown]
  - Abdominal pain upper [Unknown]
